FAERS Safety Report 22092189 (Version 1)
Quarter: 2023Q1

REPORT INFORMATION
  Report Type: Spontaneous
  Country: CA (occurrence: CA)
  Receive Date: 20230314
  Receipt Date: 20230314
  Transmission Date: 20230418
  Serious: Yes (Death, Other)
  Sender: FDA-Public Use
  Company Number: CA-AMGEN-CANSP2023042553

PATIENT

DRUGS (4)
  1. XGEVA [Suspect]
     Active Substance: DENOSUMAB
     Indication: Metastases to bone
     Dosage: UNK
     Route: 065
  2. DOXYCYCLINE [Concomitant]
     Active Substance: DOXYCYCLINE
     Dosage: 100 MILLIGRAM, BID, FOR A PERIOD OF 12 WEEKS
     Route: 048
  3. TRASTUZUMAB [Concomitant]
     Active Substance: TRASTUZUMAB
     Indication: Breast cancer metastatic
     Dosage: UNK
  4. VITAMIN D [Concomitant]
     Active Substance: VITAMIN D NOS
     Dosage: UNK

REACTIONS (9)
  - Death [Fatal]
  - Breast cancer metastatic [Unknown]
  - Pathological fracture [Unknown]
  - Spinal cord compression [Unknown]
  - Adverse event [Unknown]
  - Hypercalcaemia [Unknown]
  - Surgery [Unknown]
  - Radiotherapy [Unknown]
  - Bone pain [Unknown]
